FAERS Safety Report 20850817 (Version 1)
Quarter: 2022Q2

REPORT INFORMATION
  Report Type: Spontaneous
  Country: US (occurrence: None)
  Receive Date: 20220518
  Receipt Date: 20220518
  Transmission Date: 20220720
  Serious: Yes (Disabling)
  Sender: FDA-Public Use
  Company Number: None

PATIENT
  Age: 70 Year
  Sex: Female
  Weight: 74.25 kg

DRUGS (14)
  1. ZONISAMIDE [Suspect]
     Active Substance: ZONISAMIDE
     Indication: Tremor
     Dosage: 1 CAPSULE DAILY ORAL
     Route: 048
     Dates: start: 20200702, end: 20220517
  2. LITHIUM CARBONATE [Concomitant]
     Active Substance: LITHIUM CARBONATE
  3. PROPRANALOL ER [Concomitant]
  4. GABAPENTIN [Concomitant]
     Active Substance: GABAPENTIN
  5. QUETIAPINE [Concomitant]
     Active Substance: QUETIAPINE
  6. MULTIVITAMIN + MINERALS WOMEN OVER 50 [Concomitant]
  7. NERVE REPAIR OPTIMIZER (ALPHA LIPOIC ACID 300 MG) [Concomitant]
  8. PYRIDOXINE [Concomitant]
     Active Substance: PYRIDOXINE
  9. VITAMIN B COMPLEX W/ FOLIC ACID + VITAMIN C [Concomitant]
  10. CALCIUM [Concomitant]
  11. VITAMIN D [Concomitant]
     Active Substance: VITAMIN D NOS
  12. VITAMIN E [Concomitant]
     Active Substance: .ALPHA.-TOCOPHEROL
  13. EVENING PRIMROSE OIL FOR GAMMA LINOLENIC ACID [Concomitant]
  14. MELATONIN [Concomitant]
     Active Substance: MELATONIN

REACTIONS (5)
  - Disturbance in attention [None]
  - Speech disorder [None]
  - Disturbance in attention [None]
  - Drug monitoring procedure not performed [None]
  - Bone density abnormal [None]

NARRATIVE: CASE EVENT DATE: 20220503
